FAERS Safety Report 25036422 (Version 2)
Quarter: 2025Q1

REPORT INFORMATION
  Report Type: Spontaneous
  Country: CN (occurrence: CN)
  Receive Date: 20250304
  Receipt Date: 20250326
  Transmission Date: 20250409
  Serious: Yes (Death, Other)
  Sender: RANBAXY
  Company Number: CN-SUN PHARMACEUTICAL INDUSTRIES LTD-2025R1-497052

PATIENT
  Age: 75 Year
  Sex: Male

DRUGS (5)
  1. OXALIPLATIN [Suspect]
     Active Substance: OXALIPLATIN
     Indication: Intestinal adenocarcinoma
     Route: 042
  2. IRINOTECAN [Suspect]
     Active Substance: IRINOTECAN
     Indication: Intestinal adenocarcinoma
     Route: 042
  3. LEUCOVORIN CALCIUM [Suspect]
     Active Substance: LEUCOVORIN CALCIUM
     Indication: Intestinal adenocarcinoma
     Route: 042
  4. FLUOROURACIL [Suspect]
     Active Substance: FLUOROURACIL
     Indication: Intestinal adenocarcinoma
     Route: 042
  5. TRASTUZUMAB [Suspect]
     Active Substance: TRASTUZUMAB
     Indication: Intestinal adenocarcinoma
     Route: 042

REACTIONS (3)
  - Pleural effusion [Fatal]
  - Metastases to lung [Fatal]
  - Disease progression [Unknown]

NARRATIVE: CASE EVENT DATE: 20210201
